FAERS Safety Report 13519466 (Version 1)
Quarter: 2017Q2

REPORT INFORMATION
  Report Type: Not Available
  Country: None (occurrence: US)
  Receive Date: 20170505
  Receipt Date: 20170505
  Transmission Date: 20170830
  Serious: No
  Sender: FDA-Public Use
  Company Number: US-AKORN-55697

PATIENT
  Sex: Female

DRUGS (1)
  1. KETOROLAC TROMETHAMINE 0.5 % OPHTHALMIC SOLUTION [Suspect]
     Active Substance: KETOROLAC TROMETHAMINE

REACTIONS (5)
  - Overdose [Unknown]
  - Feeling abnormal [Unknown]
  - Restlessness [Unknown]
  - Eye irritation [Unknown]
  - Diarrhoea [Recovered/Resolved]
